FAERS Safety Report 5797197-8 (Version None)
Quarter: 2008Q3

REPORT INFORMATION
  Report Type: 
  Country: None (occurrence: None)
  Receive Date: 20080701
  Receipt Date: 20080620
  Transmission Date: 20090109
  Serious: Yes (Other)
  Sender: FDA-Public Use
  Company Number: JP-PFIZER INC-2007084265

PATIENT
  Sex: Male

DRUGS (4)
  1. GABAPEN [Suspect]
     Dosage: DAILY DOSE:500MG
     Route: 048
  2. TEGRETOL [Concomitant]
     Route: 048
  3. DEPAKENE [Concomitant]
     Route: 048
  4. CLOBAZAM [Concomitant]
     Route: 048

REACTIONS (4)
  - CONVULSION [None]
  - RASH [None]
  - SOMNOLENCE [None]
  - URINARY INCONTINENCE [None]
